FAERS Safety Report 4352692-3 (Version None)
Quarter: 2004Q2

REPORT INFORMATION
  Report Type: 
  Country: None (occurrence: None)
  Receive Date: 20040430
  Receipt Date: 20040421
  Transmission Date: 20050107
  Serious: Yes (Other)
  Sender: FDA-Public Use
  Company Number: US-JNJFOC-20040405069

PATIENT
  Age: 9 Year
  Sex: Male

DRUGS (1)
  1. RISPERDAL [Suspect]
     Indication: AUTISM
     Dosage: 0.25 MG, 2 IN 1 DAY, ORAL
     Route: 048
     Dates: start: 20021101

REACTIONS (1)
  - DIABETES MELLITUS INSULIN-DEPENDENT [None]
